FAERS Safety Report 21937866 (Version 1)
Quarter: 2023Q1

REPORT INFORMATION
  Report Type: Report from Study
  Country: US (occurrence: US)
  Receive Date: 20230201
  Receipt Date: 20230201
  Transmission Date: 20230417
  Serious: Yes (Other)
  Sender: FDA-Public Use
  Company Number: US-ALLERGAN-2239567US

PATIENT
  Sex: Female

DRUGS (4)
  1. THYROID, UNSPECIFIED [Suspect]
     Active Substance: THYROID, UNSPECIFIED
     Indication: Product used for unknown indication
     Dosage: 60 MG, QD
     Route: 048
     Dates: start: 1957
  2. THYROID, UNSPECIFIED [Suspect]
     Active Substance: THYROID, UNSPECIFIED
     Indication: Product used for unknown indication
     Dosage: 15 MG, BID
     Route: 048
     Dates: start: 1957
  3. ESTRACE [Concomitant]
     Active Substance: ESTRADIOL
     Dosage: UNK
  4. UNSPECIFIED INGREDIENT [Concomitant]
     Active Substance: UNSPECIFIED INGREDIENT
     Dosage: FOR A MONTH

REACTIONS (9)
  - Myeloproliferative neoplasm [Unknown]
  - Neoplasm malignant [Unknown]
  - Gait disturbance [Not Recovered/Not Resolved]
  - Phlebitis [Not Recovered/Not Resolved]
  - Illness [Unknown]
  - Platelet disorder [Unknown]
  - Thrombosis [Unknown]
  - Pain in extremity [Unknown]
  - Erythema [Unknown]

NARRATIVE: CASE EVENT DATE: 20210101
